FAERS Safety Report 25524501 (Version 1)
Quarter: 2025Q3

REPORT INFORMATION
  Report Type: Report from Study
  Country: US (occurrence: US)
  Receive Date: 20250707
  Receipt Date: 20250707
  Transmission Date: 20251021
  Serious: Yes (Hospitalization)
  Sender: MYLAN
  Company Number: US-MYLANLABS-2025M1055097

PATIENT

DRUGS (36)
  1. METHOTREXATE [Suspect]
     Active Substance: METHOTREXATE
     Indication: Lymphoma
  2. METHOTREXATE [Suspect]
     Active Substance: METHOTREXATE
     Route: 042
  3. METHOTREXATE [Suspect]
     Active Substance: METHOTREXATE
     Route: 042
  4. METHOTREXATE [Suspect]
     Active Substance: METHOTREXATE
  5. LEUCOVORIN [Suspect]
     Active Substance: LEUCOVORIN\LEUCOVORIN CALCIUM
     Indication: Renal disorder prophylaxis
     Dosage: 25 MILLIGRAM, Q6H
  6. LEUCOVORIN [Suspect]
     Active Substance: LEUCOVORIN\LEUCOVORIN CALCIUM
     Dosage: 25 MILLIGRAM, Q6H
     Route: 042
  7. LEUCOVORIN [Suspect]
     Active Substance: LEUCOVORIN\LEUCOVORIN CALCIUM
     Dosage: 25 MILLIGRAM, Q6H
     Route: 042
  8. LEUCOVORIN [Suspect]
     Active Substance: LEUCOVORIN\LEUCOVORIN CALCIUM
     Dosage: 25 MILLIGRAM, Q6H
  9. SODIUM CHLORIDE [Suspect]
     Active Substance: SODIUM CHLORIDE
     Indication: Urine alkalinisation therapy
  10. SODIUM CHLORIDE [Suspect]
     Active Substance: SODIUM CHLORIDE
     Indication: Renal disorder prophylaxis
     Route: 042
  11. SODIUM CHLORIDE [Suspect]
     Active Substance: SODIUM CHLORIDE
     Indication: Fluid replacement
     Route: 042
  12. SODIUM CHLORIDE [Suspect]
     Active Substance: SODIUM CHLORIDE
  13. SODIUM BICARBONATE [Suspect]
     Active Substance: SODIUM BICARBONATE
     Indication: Urine alkalinisation therapy
  14. SODIUM BICARBONATE [Suspect]
     Active Substance: SODIUM BICARBONATE
     Indication: Renal disorder prophylaxis
     Route: 042
  15. SODIUM BICARBONATE [Suspect]
     Active Substance: SODIUM BICARBONATE
     Indication: Fluid replacement
     Route: 042
  16. SODIUM BICARBONATE [Suspect]
     Active Substance: SODIUM BICARBONATE
  17. RITUXIMAB [Concomitant]
     Active Substance: RITUXIMAB
     Indication: Lymphoma
  18. RITUXIMAB [Concomitant]
     Active Substance: RITUXIMAB
     Route: 065
  19. RITUXIMAB [Concomitant]
     Active Substance: RITUXIMAB
     Route: 065
  20. RITUXIMAB [Concomitant]
     Active Substance: RITUXIMAB
  21. CYCLOPHOSPHAMIDE [Concomitant]
     Active Substance: CYCLOPHOSPHAMIDE
     Indication: Lymphoma
  22. CYCLOPHOSPHAMIDE [Concomitant]
     Active Substance: CYCLOPHOSPHAMIDE
     Route: 065
  23. CYCLOPHOSPHAMIDE [Concomitant]
     Active Substance: CYCLOPHOSPHAMIDE
     Route: 065
  24. CYCLOPHOSPHAMIDE [Concomitant]
     Active Substance: CYCLOPHOSPHAMIDE
  25. DOXORUBICIN [Concomitant]
     Active Substance: DOXORUBICIN
     Indication: Lymphoma
  26. DOXORUBICIN [Concomitant]
     Active Substance: DOXORUBICIN
     Route: 065
  27. DOXORUBICIN [Concomitant]
     Active Substance: DOXORUBICIN
     Route: 065
  28. DOXORUBICIN [Concomitant]
     Active Substance: DOXORUBICIN
  29. VINCRISTINE [Concomitant]
     Active Substance: VINCRISTINE
     Indication: Lymphoma
  30. VINCRISTINE [Concomitant]
     Active Substance: VINCRISTINE
     Route: 065
  31. VINCRISTINE [Concomitant]
     Active Substance: VINCRISTINE
     Route: 065
  32. VINCRISTINE [Concomitant]
     Active Substance: VINCRISTINE
  33. PREDNISONE [Concomitant]
     Active Substance: PREDNISONE
     Indication: Lymphoma
  34. PREDNISONE [Concomitant]
     Active Substance: PREDNISONE
     Route: 065
  35. PREDNISONE [Concomitant]
     Active Substance: PREDNISONE
     Route: 065
  36. PREDNISONE [Concomitant]
     Active Substance: PREDNISONE

REACTIONS (4)
  - Toxicity to various agents [Recovered/Resolved]
  - Drug level increased [Recovered/Resolved]
  - Acute kidney injury [Recovered/Resolved]
  - Drug ineffective [Unknown]
